FAERS Safety Report 4413899-X (Version None)
Quarter: 2004Q3

REPORT INFORMATION
  Report Type: 
  Country: None (occurrence: None)
  Receive Date: 20040728
  Receipt Date: 20040715
  Transmission Date: 20050211
  Serious: Yes (Other)
  Sender: FDA-Public Use
  Company Number: 2004038924

PATIENT
  Age: 62 Year
  Sex: Female
  Weight: 80 kg

DRUGS (7)
  1. CARDURA [Suspect]
     Indication: HYPERTENSION
     Dosage: 2 MG ( MG, 1 IN 1 D), ORAL
     Route: 048
     Dates: start: 20030210, end: 20040606
  2. WARFARIN (WARFARIN) [Concomitant]
  3. DENDROFLUMETHIAZIDE (BENDROFLUMETHIAZIDE) [Concomitant]
  4. PAROXETINE HCL [Concomitant]
  5. FUROSEMIDE [Concomitant]
  6. ATORVASTATIN CALCIUM [Concomitant]
  7. RAMIPRIL [Concomitant]

REACTIONS (3)
  - CIRCULATORY COLLAPSE [None]
  - DIZZINESS [None]
  - LOSS OF CONSCIOUSNESS [None]
